FAERS Safety Report 20790849 (Version 3)
Quarter: 2022Q3

REPORT INFORMATION
  Report Type: Spontaneous
  Country: US (occurrence: US)
  Receive Date: 20220505
  Receipt Date: 20220822
  Transmission Date: 20221027
  Serious: No
  Sender: FDA-Public Use
  Company Number: US-PFIZER INC-202200596317

PATIENT
  Age: 69 Year
  Sex: Male
  Weight: 81.65 kg

DRUGS (2)
  1. LATANOPROST [Suspect]
     Active Substance: LATANOPROST
     Indication: Ocular discomfort
     Dosage: UNK, DAILY (STERILE .005%, 125MCG PER 2.5ML, 1 DROP IN EACH EYE IN THE EVENING)
     Dates: start: 202203, end: 20220401
  2. LATANOPROST [Suspect]
     Active Substance: LATANOPROST
     Indication: Glaucoma
     Dosage: UNK
     Dates: start: 20220401

REACTIONS (1)
  - Eye pain [Not Recovered/Not Resolved]

NARRATIVE: CASE EVENT DATE: 20220301
